FAERS Safety Report 11430042 (Version 2)
Quarter: 2015Q3

REPORT INFORMATION
  Report Type: Spontaneous
  Country: US (occurrence: US)
  Receive Date: 20150828
  Receipt Date: 20150904
  Transmission Date: 20151125
  Serious: Yes (Hospitalization, Disabling, Other)
  Sender: FDA-Public Use
  Company Number: PHEH2014US019038

PATIENT
  Sex: Female
  Weight: 66 kg

DRUGS (2)
  1. TRILEPTAL [Suspect]
     Active Substance: OXCARBAZEPINE
     Dosage: UNK
     Route: 048
  2. TRILEPTAL [Suspect]
     Active Substance: OXCARBAZEPINE
     Dosage: 600 MG, TID
     Route: 048
     Dates: start: 2002

REACTIONS (3)
  - Muscle spasms [Unknown]
  - Hyponatraemia [Recovered/Resolved with Sequelae]
  - Muscle swelling [Unknown]

NARRATIVE: CASE EVENT DATE: 2008
